FAERS Safety Report 6012308-7 (Version None)
Quarter: 2008Q4

REPORT INFORMATION
  Report Type: 
  Country: None (occurrence: None)
  Receive Date: 20081218
  Receipt Date: 20081110
  Transmission Date: 20090506
  Serious: No
  Sender: FDA-Public Use
  Company Number: US-ASTRAZENECA-2008UW25189

PATIENT
  Age: 72 Year
  Sex: Female
  Weight: 43.1 kg

DRUGS (7)
  1. SYMBICORT [Suspect]
     Indication: CHRONIC OBSTRUCTIVE PULMONARY DISEASE
     Dosage: 160/4.5 UG  2 PUFFS TWICE DAILY
     Route: 055
     Dates: start: 20080924
  2. PROVENTIL [Concomitant]
  3. SPIRIVA [Concomitant]
  4. HYZAAR [Concomitant]
  5. VERAPAMIL [Concomitant]
  6. VITAMIN [Concomitant]
  7. CALTRATE [Concomitant]

REACTIONS (3)
  - INSOMNIA [None]
  - THINKING ABNORMAL [None]
  - WEIGHT DECREASED [None]
